FAERS Safety Report 11643514 (Version 2)
Quarter: 2015Q4

REPORT INFORMATION
  Report Type: Spontaneous
  Country: CO (occurrence: CO)
  Receive Date: 20151020
  Receipt Date: 20151021
  Transmission Date: 20160304
  Serious: Yes (Other)
  Sender: FDA-Public Use
  Company Number: PHHY2015CO125628

PATIENT
  Sex: Female

DRUGS (1)
  1. ACLASTA [Suspect]
     Active Substance: ZOLEDRONIC ACID
     Indication: PRODUCT USED FOR UNKNOWN INDICATION
     Route: 065

REACTIONS (11)
  - Rheumatoid arthritis [Unknown]
  - Abasia [Unknown]
  - Urinary tract infection [Unknown]
  - Anaemia [Unknown]
  - Pain in extremity [Unknown]
  - Bone disorder [Unknown]
  - Myalgia [Unknown]
  - Arthralgia [Unknown]
  - Arthropathy [Unknown]
  - Lethargy [Unknown]
  - Musculoskeletal stiffness [Unknown]
